FAERS Safety Report 21217486 (Version 1)
Quarter: 2022Q3

REPORT INFORMATION
  Report Type: Spontaneous
  Country: AU (occurrence: AU)
  Receive Date: 20220816
  Receipt Date: 20220816
  Transmission Date: 20221027
  Serious: Yes (Death, Hospitalization)
  Sender: FDA-Public Use
  Company Number: AU-SAMSUNG BIOEPIS-SB-2022-20079

PATIENT
  Age: 68 Year
  Sex: Male
  Weight: 57 kg

DRUGS (6)
  1. INFLIXIMAB [Suspect]
     Active Substance: INFLIXIMAB
     Indication: Immune-mediated enterocolitis
     Dosage: UNKNOWN, STAT DOSE
     Route: 065
  2. PANTOPRAZOLE [Suspect]
     Active Substance: PANTOPRAZOLE
     Indication: Product used for unknown indication
     Dosage: UNKNOWN
     Route: 065
  3. PREDNISOLONE [Concomitant]
     Active Substance: PREDNISOLONE
     Indication: Immune-mediated enterocolitis
     Dosage: UNKNOWN, PRIOR TO ADMISSION
     Route: 065
  4. PREDNISOLONE [Concomitant]
     Active Substance: PREDNISOLONE
     Dosage: WEANED AT THE TIME OF ADMISSION
     Route: 065
  5. PREDNISOLONE [Concomitant]
     Active Substance: PREDNISOLONE
     Route: 048
  6. PEMBROLIZUMAB [Concomitant]
     Active Substance: PEMBROLIZUMAB
     Indication: Non-small cell lung cancer metastatic
     Dosage: UNKNOWN
     Route: 065

REACTIONS (7)
  - Toxic epidermal necrolysis [Unknown]
  - Death [Fatal]
  - Gastrointestinal haemorrhage [Unknown]
  - Hypotension [Unknown]
  - Hypoglycaemia [Unknown]
  - Acinetobacter infection [Unknown]
  - Off label use [Unknown]
